FAERS Safety Report 9667750 (Version 1)
Quarter: 2013Q4

REPORT INFORMATION
  Report Type: Spontaneous
  Country: IR (occurrence: IR)
  Receive Date: 20131104
  Receipt Date: 20131104
  Transmission Date: 20140711
  Serious: Yes (Other)
  Sender: FDA-Public Use
  Company Number: AE-ASTRAZENECA-2013SE79081

PATIENT
  Age: 39 Year
  Sex: Female

DRUGS (2)
  1. LIDOCAINE [Suspect]
     Route: 053
  2. DYSPORT [Interacting]

REACTIONS (2)
  - Dysphagia [Unknown]
  - Potentiating drug interaction [Unknown]
